FAERS Safety Report 5690343-6 (Version None)
Quarter: 2008Q1

REPORT INFORMATION
  Report Type: 
  Country: None (occurrence: None)
  Receive Date: 20080331
  Receipt Date: 20080331
  Transmission Date: 20080703
  Serious: Yes (Other)
  Sender: FDA-Public Use
  Company Number: None

PATIENT
  Age: 21 Month
  Sex: Female
  Weight: 10.4327 kg

DRUGS (1)
  1. SINGULAIR [Suspect]
     Indication: MULTIPLE ALLERGIES
     Dosage: 4 MG ONCE A DAILY PO
     Route: 048
     Dates: start: 20080118, end: 20080215

REACTIONS (6)
  - AGGRESSION [None]
  - ANGER [None]
  - CONVULSION [None]
  - CRYING [None]
  - NIGHTMARE [None]
  - SCREAMING [None]
